FAERS Safety Report 8119553-5 (Version None)
Quarter: 2012Q1

REPORT INFORMATION
  Report Type: 
  Country: None (occurrence: None)
  Receive Date: 20120207
  Receipt Date: 20120131
  Transmission Date: 20120608
  Serious: Yes (Death, Other)
  Sender: FDA-Public Use
  Company Number: PHHY2012BR007985

PATIENT
  Age: 62 Year
  Sex: Female

DRUGS (7)
  1. RASILEZ AMLO [Suspect]
     Indication: HYPERTENSION
     Dosage: 1 DF, QD
     Route: 048
     Dates: start: 20100801
  2. LASIX [Suspect]
  3. METOPROLOL SUCCINATE [Concomitant]
  4. ATACAND [Suspect]
  5. HYDRALAZINE HCL [Concomitant]
  6. AMIODARONE HYDROCHLORIDE [Concomitant]
  7. ALLOPURINOL [Concomitant]

REACTIONS (5)
  - MALAISE [None]
  - FEELING ABNORMAL [None]
  - MYOCARDIAL INFARCTION [None]
  - SUDDEN DEATH [None]
  - LOSS OF CONSCIOUSNESS [None]
